FAERS Safety Report 7288568-1 (Version None)
Quarter: 2011Q1

REPORT INFORMATION
  Report Type: 
  Country: None (occurrence: None)
  Receive Date: 20110207
  Receipt Date: 20110207
  Transmission Date: 20110831
  Serious: Yes (Hospitalization)
  Sender: FDA-Public Use
  Company Number: None

PATIENT
  Sex: Female
  Weight: 59.8748 kg

DRUGS (2)
  1. AVASTIN [Suspect]
  2. RAD001 10 MG NOVARTIS [Suspect]

REACTIONS (2)
  - INTESTINAL OBSTRUCTION [None]
  - DISEASE PROGRESSION [None]
